FAERS Safety Report 9714048 (Version 2)
Quarter: 2013Q4

REPORT INFORMATION
  Report Type: Spontaneous
  Country: US (occurrence: US)
  Receive Date: 20131126
  Receipt Date: 20131126
  Transmission Date: 20140711
  Serious: No
  Sender: FDA-Public Use
  Company Number: US-GILEAD-2008-0018313

PATIENT
  Sex: Female
  Weight: 55.79 kg

DRUGS (2)
  1. LETAIRIS [Suspect]
     Indication: PULMONARY ARTERIAL HYPERTENSION
     Route: 048
     Dates: start: 20080722
  2. NEXIUM [Concomitant]
     Dosage: AS DIRECTED
     Route: 048

REACTIONS (1)
  - Gastrooesophageal reflux disease [None]
